FAERS Safety Report 8958361 (Version 1)
Quarter: 2012Q4

REPORT INFORMATION
  Report Type: 
  Country: US (occurrence: US)
  Receive Date: 20121210
  Receipt Date: 20121210
  Transmission Date: 20130627
  Serious: Yes (Death)
  Sender: FDA-Public Use
  Company Number: US-GLAXOSMITHKLINE-A1003907A

PATIENT
  Age: 79 Year
  Sex: Female

DRUGS (7)
  1. ADVAIR [Suspect]
     Indication: CHRONIC OBSTRUCTIVE PULMONARY DISEASE
     Dosage: 1PUFF Twice per day
     Route: 055
  2. NEBULIZER [Concomitant]
  3. DIGOXIN [Concomitant]
  4. DILTIAZEM [Concomitant]
  5. PREDNISONE [Concomitant]
  6. VITAMIN D [Concomitant]
  7. MIRTAZAPINE [Concomitant]

REACTIONS (3)
  - Chronic obstructive pulmonary disease [Fatal]
  - Hypoxia [Unknown]
  - Cardiac disorder [Unknown]
